FAERS Safety Report 18287768 (Version 1)
Quarter: 2020Q3

REPORT INFORMATION
  Report Type: Spontaneous
  Country: US (occurrence: US)
  Receive Date: 20200918
  Receipt Date: 20200918
  Transmission Date: 20201103
  Serious: Yes (Disabling)
  Sender: FDA-Public Use
  Company Number: None

PATIENT
  Age: 35 Year
  Sex: Female
  Weight: 93.6 kg

DRUGS (1)
  1. CIPROFLOXACIN. [Suspect]
     Active Substance: CIPROFLOXACIN
     Indication: URINARY TRACT INFECTION
     Dates: start: 20200718, end: 20200718

REACTIONS (4)
  - Pain in extremity [None]
  - Hypokinesia [None]
  - Loss of personal independence in daily activities [None]
  - Gait inability [None]

NARRATIVE: CASE EVENT DATE: 20200718
